FAERS Safety Report 23629902 (Version 2)
Quarter: 2024Q1

REPORT INFORMATION
  Report Type: Spontaneous
  Country: US (occurrence: US)
  Receive Date: 20240314
  Receipt Date: 20240314
  Transmission Date: 20240409
  Serious: No
  Sender: FDA-Public Use
  Company Number: US-ASTELLAS-2023US032465

PATIENT
  Age: 36 Year
  Sex: Male

DRUGS (2)
  1. CRESEMBA [Suspect]
     Active Substance: ISAVUCONAZONIUM SULFATE
     Indication: Coccidioidomycosis
     Dosage: Q8H FOR 48HRS , OTHER (LOADING DOSE)
     Route: 065
     Dates: start: 20231024
  2. CRESEMBA [Suspect]
     Active Substance: ISAVUCONAZONIUM SULFATE
     Dosage: 372 MG, ONCE DAILY (186 MG X 2 CAPSULES)
     Route: 048

REACTIONS (5)
  - Hyperhidrosis [Not Recovered/Not Resolved]
  - Lip dry [Not Recovered/Not Resolved]
  - Condition aggravated [Not Recovered/Not Resolved]
  - Somnolence [Not Recovered/Not Resolved]
  - Off label use [Unknown]

NARRATIVE: CASE EVENT DATE: 20231024
